FAERS Safety Report 22379428 (Version 2)
Quarter: 2023Q2

REPORT INFORMATION
  Report Type: Spontaneous
  Country: RU (occurrence: RU)
  Receive Date: 20230529
  Receipt Date: 20230608
  Transmission Date: 20230721
  Serious: Yes (Other)
  Sender: FDA-Public Use
  Company Number: RU-PFIZER INC-PV202300091537

PATIENT
  Age: 34 Year
  Sex: Female

DRUGS (1)
  1. LORLATINIB [Suspect]
     Active Substance: LORLATINIB
     Indication: Renal cell carcinoma
     Dosage: 100 MG, 1X/DAY
     Dates: start: 202212

REACTIONS (10)
  - Neuropathy peripheral [Recovering/Resolving]
  - Quadriparesis [Unknown]
  - Asthenia [Unknown]
  - Hyperhidrosis [Unknown]
  - Oedema peripheral [Recovered/Resolved]
  - Hypoaesthesia [Recovered/Resolved]
  - Paraesthesia [Unknown]
  - Pain in extremity [Recovered/Resolved]
  - Hyperaesthesia [Unknown]
  - Neoplasm progression [Unknown]

NARRATIVE: CASE EVENT DATE: 20221208
